FAERS Safety Report 4453734-7 (Version None)
Quarter: 2004Q3

REPORT INFORMATION
  Report Type: 
  Country: None (occurrence: None)
  Receive Date: 20040920
  Receipt Date: 20040908
  Transmission Date: 20050211
  Serious: Yes (Hospitalization)
  Sender: FDA-Public Use
  Company Number: 200416774US

PATIENT
  Age: 55 Year
  Sex: Female

DRUGS (3)
  1. KETEK [Suspect]
     Indication: BRONCHITIS ACUTE
     Dosage: DOSE: UNK
  2. VASOTEC [Suspect]
     Dosage: DOSE: UNK
  3. NSAID'S [Suspect]
     Indication: ARTHROPATHY
     Dosage: DOSE: UNK

REACTIONS (3)
  - DEHYDRATION [None]
  - RENAL FAILURE [None]
  - VISION BLURRED [None]
